FAERS Safety Report 23654624 (Version 1)
Quarter: 2024Q1

REPORT INFORMATION
  Report Type: Spontaneous
  Country: CL (occurrence: CL)
  Receive Date: 20240320
  Receipt Date: 20240320
  Transmission Date: 20240409
  Serious: Yes (Hospitalization)
  Sender: FDA-Public Use
  Company Number: CL-GSKCCFAMERS-Case-01957738_AE-108790

PATIENT

DRUGS (1)
  1. NUCALA [Suspect]
     Active Substance: MEPOLIZUMAB
     Indication: Asthma
     Dosage: 100 MG, MO
     Dates: start: 20210622

REACTIONS (4)
  - Asthma [Unknown]
  - Eosinophil count increased [Not Recovered/Not Resolved]
  - Spirometry abnormal [Unknown]
  - Product dose omission issue [Unknown]
